FAERS Safety Report 5749147-8 (Version None)
Quarter: 2008Q2

REPORT INFORMATION
  Report Type: 
  Country: None (occurrence: None)
  Receive Date: 20080522
  Receipt Date: 20080508
  Transmission Date: 20081010
  Serious: Yes (Other)
  Sender: FDA-Public Use
  Company Number: GXKR2008GB04283

PATIENT
  Age: 56 Year
  Sex: Female
  Weight: 86.7 kg

DRUGS (2)
  1. TRAMADOL HCL [Suspect]
     Indication: PAIN
     Dosage: 50 MG, ORAL
     Route: 048
     Dates: start: 20080427, end: 20080428
  2. GEMCITABINE [Concomitant]

REACTIONS (3)
  - CEREBROVASCULAR ACCIDENT [None]
  - DYSPHAGIA [None]
  - PARESIS CRANIAL NERVE [None]
